FAERS Safety Report 7078844-X (Version None)
Quarter: 2010Q4

REPORT INFORMATION
  Report Type: 
  Country: None (occurrence: None)
  Receive Date: 20101102
  Receipt Date: 20101025
  Transmission Date: 20110411
  Serious: Yes (Other)
  Sender: FDA-Public Use
  Company Number: US-SANOFI-AVENTIS-2010SA065498

PATIENT
  Age: 54 Year
  Sex: Female

DRUGS (4)
  1. ELOXATIN [Suspect]
     Route: 051
     Dates: start: 20060101, end: 20060101
  2. ELOXATIN [Suspect]
     Route: 051
  3. FOLINIC ACID [Suspect]
     Route: 065
     Dates: start: 20060101
  4. FLUOROURACIL [Suspect]
     Route: 065
     Dates: start: 20060101

REACTIONS (12)
  - ALANINE AMINOTRANSFERASE INCREASED [None]
  - ASPARTATE AMINOTRANSFERASE INCREASED [None]
  - ASTHENIA [None]
  - DERMATOMYOSITIS [None]
  - HYPOAESTHESIA [None]
  - MUSCULAR WEAKNESS [None]
  - NEUROPATHY PERIPHERAL [None]
  - NODULE [None]
  - PARAESTHESIA [None]
  - RASH MACULO-PAPULAR [None]
  - RASH PRURITIC [None]
  - TRANSAMINASES INCREASED [None]
